FAERS Safety Report 24997166 (Version 1)
Quarter: 2025Q1

REPORT INFORMATION
  Report Type: Spontaneous
  Country: CA (occurrence: CA)
  Receive Date: 20250221
  Receipt Date: 20250221
  Transmission Date: 20250408
  Serious: Yes (Other)
  Sender: TEVA
  Company Number: CA-TEVA-VS-3300942

PATIENT
  Age: 45 Year
  Sex: Female

DRUGS (1)
  1. LISDEXAMFETAMINE [Suspect]
     Active Substance: LISDEXAMFETAMINE
     Indication: Attention deficit hyperactivity disorder
     Route: 048

REACTIONS (16)
  - Renal pain [Recovering/Resolving]
  - Erythema [Recovering/Resolving]
  - Gait disturbance [Recovering/Resolving]
  - Pallor [Recovering/Resolving]
  - Poor peripheral circulation [Recovering/Resolving]
  - Peripheral coldness [Recovering/Resolving]
  - Cold sweat [Recovering/Resolving]
  - Yellow skin [Recovering/Resolving]
  - Pain [Recovering/Resolving]
  - Pain in extremity [Recovering/Resolving]
  - Product substitution issue [Recovering/Resolving]
  - Skin discolouration [Recovering/Resolving]
  - Paraesthesia [Recovering/Resolving]
  - Cyanosis [Recovering/Resolving]
  - Therapeutic response shortened [Recovering/Resolving]
  - Peripheral swelling [Recovering/Resolving]
